FAERS Safety Report 8472614-3 (Version None)
Quarter: 2012Q2

REPORT INFORMATION
  Report Type: 
  Country: None (occurrence: None)
  Receive Date: 20120627
  Receipt Date: 20110707
  Transmission Date: 20120825
  Serious: No
  Sender: FDA-Public Use
  Company Number: US-AMGEN-USASP2011015420

PATIENT
  Age: 79 Year
  Sex: Male
  Weight: 56.689 kg

DRUGS (5)
  1. EFFEXOR [Concomitant]
     Dosage: 75 MG, Q12H
     Route: 048
  2. TOPAMAX [Concomitant]
     Dosage: 50 MG, Q8H
     Route: 048
  3. EPOGEN [Suspect]
     Dosage: UNK
     Dates: start: 20101118
  4. KLONOPIN [Concomitant]
     Dosage: 0.5 MG, QD
     Route: 048
  5. PROCRIT [Suspect]
     Indication: ANAEMIA
     Dosage: 40 ML, QWK
     Dates: start: 20010208, end: 20101104

REACTIONS (2)
  - BLOOD COUNT ABNORMAL [None]
  - DRUG INEFFECTIVE [None]
